FAERS Safety Report 15400443 (Version 1)
Quarter: 2018Q4

REPORT INFORMATION
  Report Type: Spontaneous
  Country: RU (occurrence: RU)
  Receive Date: 20180919
  Receipt Date: 20180919
  Transmission Date: 20190204
  Serious: Yes (Life-Threatening)
  Sender: FDA-Public Use
  Company Number: RU-TEVA-2018-RU-956036

PATIENT
  Age: 41 Year
  Sex: Female

DRUGS (1)
  1. ALMONT [Suspect]
     Active Substance: MONTELUKAST SODIUM
     Indication: ASTHMA
     Dosage: 10 MILLIGRAM DAILY;
     Dates: start: 20170317, end: 20170420

REACTIONS (1)
  - Drug ineffective [Recovered/Resolved]

NARRATIVE: CASE EVENT DATE: 20170322
